FAERS Safety Report 8115282-2 (Version None)
Quarter: 2012Q1

REPORT INFORMATION
  Report Type: 
  Country: None (occurrence: None)
  Receive Date: 20120206
  Receipt Date: 20120130
  Transmission Date: 20120608
  Serious: Yes (Death)
  Sender: FDA-Public Use
  Company Number: JP-ASTELLAS-2012JP000927

PATIENT
  Age: 63 Year
  Sex: Female

DRUGS (6)
  1. MYCOPHENOLATE MOFETIL [Suspect]
     Dosage: 3 G, UNKNOWN/D
     Route: 065
  2. MYCOPHENOLATE MOFETIL [Suspect]
     Dosage: 2 G, UNKNOWN/D
     Route: 065
  3. METHYLPREDNISOLONE [Suspect]
     Indication: LIVER TRANSPLANT
     Route: 065
  4. MYCOPHENOLATE MOFETIL [Suspect]
     Dosage: 2 G, UNKNOWN/D
     Route: 065
  5. PREDNISOLONE [Suspect]
     Indication: LIVER TRANSPLANT
     Route: 048
  6. PROGRAF [Suspect]
     Indication: LIVER TRANSPLANT
     Route: 065

REACTIONS (2)
  - PORTAL VEIN THROMBOSIS [None]
  - ASPERGILLOSIS [None]
